FAERS Safety Report 8959481 (Version 2)
Quarter: 2012Q4

REPORT INFORMATION
  Report Type: 
  Country: DE (occurrence: IT)
  Receive Date: 20121212
  Receipt Date: 20121224
  Transmission Date: 20130627
  Serious: Yes (Hospitalization)
  Sender: FDA-Public Use
  Company Number: IT-RANBAXY-2012US-63115

PATIENT
  Age: 39 Year
  Sex: Female

DRUGS (5)
  1. PANTOPRAZOLE [Suspect]
     Indication: PRODUCT USED FOR UNKNOWN INDICATION
     Dosage: 14 dosage forms at once
     Route: 048
     Dates: start: 20121011, end: 20121011
  2. METFORMIN [Suspect]
     Indication: PRODUCT USED FOR UNKNOWN INDICATION
     Dosage: 20 dosage form at once
     Route: 048
     Dates: start: 20121011, end: 20121011
  3. SERTRALINA [Suspect]
     Indication: PRODUCT USED FOR UNKNOWN INDICATION
     Dosage: 9 dosage form at once
     Route: 048
     Dates: start: 20121011, end: 20121011
  4. LORAZEPAM [Suspect]
     Indication: PRODUCT USED FOR UNKNOWN INDICATION
     Dosage: 20 dosage form at once
     Route: 048
     Dates: start: 20121011, end: 20121011
  5. DICLOFENAC [Suspect]
     Indication: PRODUCT USED FOR UNKNOWN INDICATION
     Dosage: 2 dosage form at once
     Route: 065
     Dates: start: 20121011, end: 20121011

REACTIONS (4)
  - Suicide attempt [Unknown]
  - Drug abuse [Unknown]
  - Toxicity to various agents [Unknown]
  - Intentional overdose [Unknown]
